FAERS Safety Report 18585084 (Version 1)
Quarter: 2020Q4

REPORT INFORMATION
  Report Type: Spontaneous
  Country: US (occurrence: US)
  Receive Date: 20201207
  Receipt Date: 20201207
  Transmission Date: 20210114
  Serious: Yes (Other)
  Sender: FDA-Public Use
  Company Number: US-AMGEN-USASP2020197439

PATIENT

DRUGS (2)
  1. BEVACIZUMAB. [Suspect]
     Active Substance: BEVACIZUMAB
     Indication: OVARIAN CANCER
     Dosage: UNK
     Route: 065
  2. BEVACIZUMAB. [Suspect]
     Active Substance: BEVACIZUMAB
     Indication: OVARIAN CANCER RECURRENT

REACTIONS (19)
  - Neuropathy peripheral [Unknown]
  - Fatigue [Unknown]
  - Rash [Unknown]
  - Thyroid disorder [Unknown]
  - Stomatitis [Unknown]
  - Nausea [Unknown]
  - Thrombocytopenia [Unknown]
  - Off label use [Unknown]
  - Hypertension [Unknown]
  - Anaemia [Unknown]
  - Wound [Unknown]
  - Muscle spasms [Unknown]
  - Pneumonitis [Unknown]
  - Vomiting [Unknown]
  - Alopecia [Unknown]
  - Intestinal perforation [Unknown]
  - Diarrhoea [Unknown]
  - Disturbance in attention [Unknown]
  - Taste disorder [Unknown]
